FAERS Safety Report 7808872-5 (Version None)
Quarter: 2011Q4

REPORT INFORMATION
  Report Type: 
  Country: None (occurrence: None)
  Receive Date: 20111012
  Receipt Date: 20111008
  Transmission Date: 20120403
  Serious: Yes (Other)
  Sender: FDA-Public Use
  Company Number: PHEH2011US03028

PATIENT
  Age: 86 Year
  Sex: Female

DRUGS (2)
  1. MIACALCIN [Suspect]
     Dosage: UNK UKN, UNK
     Route: 045
     Dates: start: 19930101, end: 20070401
  2. FOSAMAX PLUS D [Concomitant]
     Dosage: UNK UKN, UNK
     Dates: start: 20070401

REACTIONS (6)
  - UPPER LIMB FRACTURE [None]
  - FEMUR FRACTURE [None]
  - DRUG INEFFECTIVE [None]
  - ASTHENIA [None]
  - BONE DENSITY DECREASED [None]
  - FALL [None]
